FAERS Safety Report 13591099 (Version 1)
Quarter: 2017Q2

REPORT INFORMATION
  Report Type: Spontaneous
  Country: GB (occurrence: GB)
  Receive Date: 20170530
  Receipt Date: 20170530
  Transmission Date: 20170830
  Serious: Yes (Hospitalization, Other)
  Sender: FDA-Public Use
  Company Number: GB-SUN PHARMACEUTICAL INDUSTRIES LTD-2017RR-141769

PATIENT
  Age: 30 Year
  Sex: Female

DRUGS (1)
  1. LORATADINE 10 MG TABLETS [Suspect]
     Active Substance: LORATADINE
     Indication: HYPERSENSITIVITY
     Dosage: 1 DF, DAILY
     Route: 048
     Dates: start: 20170511, end: 20170512

REACTIONS (7)
  - Seizure [Recovering/Resolving]
  - Memory impairment [Recovering/Resolving]
  - Patient uncooperative [Recovering/Resolving]
  - Aggression [Recovering/Resolving]
  - Bite [Recovering/Resolving]
  - Incoherent [Recovering/Resolving]
  - Confusional state [Recovering/Resolving]
